FAERS Safety Report 19065885 (Version 1)
Quarter: 2021Q1

REPORT INFORMATION
  Report Type: Report from Study
  Country: CR (occurrence: CR)
  Receive Date: 20210327
  Receipt Date: 20210327
  Transmission Date: 20210420
  Serious: Yes (Other)
  Sender: FDA-Public Use
  Company Number: NVSC2021CR062599

PATIENT
  Age: 52 Year
  Sex: Female

DRUGS (1)
  1. EXFORGE [Suspect]
     Active Substance: AMLODIPINE BESYLATE\VALSARTAN
     Indication: PRODUCT USED FOR UNKNOWN INDICATION
     Dosage: STARTED 2 YEARS AGO AND STOPPED 8 MONTHS AGO
     Route: 065

REACTIONS (4)
  - Ovarian bacterial infection [Unknown]
  - Blood pressure increased [Unknown]
  - Headache [Unknown]
  - Ovarian cyst ruptured [Unknown]
